FAERS Safety Report 8328914-0 (Version None)
Quarter: 2012Q2

REPORT INFORMATION
  Report Type: 
  Country: None (occurrence: None)
  Receive Date: 20120502
  Receipt Date: 20120425
  Transmission Date: 20120825
  Serious: Yes (Hospitalization)
  Sender: FDA-Public Use
  Company Number: RO-SANOFI-AVENTIS-2012SA029386

PATIENT
  Sex: Female

DRUGS (10)
  1. PERINDOPRIL ERBUMINE [Concomitant]
     Route: 048
     Dates: start: 20080301
  2. ATORVASTATIN CALCIUM [Concomitant]
     Route: 048
     Dates: start: 20080301
  3. NITROMINT [Concomitant]
     Route: 048
     Dates: start: 20080301
  4. DEPAKENE [Concomitant]
     Indication: SCHIZOPHRENIA
     Dosage: EVERY
     Route: 048
     Dates: start: 20080301
  5. PLAQUENIL [Suspect]
     Route: 048
     Dates: start: 20090327, end: 20111104
  6. AZATHIOPRINE [Concomitant]
     Dosage: EVERY
     Route: 048
     Dates: start: 20090327
  7. AZATHIOPRINE [Concomitant]
     Route: 048
  8. METHYLPREDNISOLONE [Concomitant]
     Route: 048
     Dates: start: 20090327
  9. METOPROLOL TARTRATE [Concomitant]
     Dosage: EVERY
     Route: 048
  10. ACENOCOUMAROL [Concomitant]
     Route: 048
     Dates: start: 20080301

REACTIONS (4)
  - FATIGUE [None]
  - MYALGIA [None]
  - CHEST PAIN [None]
  - MUSCLE FATIGUE [None]
